FAERS Safety Report 8056446-6 (Version None)
Quarter: 2012Q1

REPORT INFORMATION
  Report Type: 
  Country: None (occurrence: None)
  Receive Date: 20120119
  Receipt Date: 20120110
  Transmission Date: 20120608
  Serious: Yes (Other)
  Sender: FDA-Public Use
  Company Number: JP-MERCK-1112USA01949

PATIENT
  Sex: Male

DRUGS (3)
  1. GEMZAR [Concomitant]
     Route: 065
  2. EMEND [Suspect]
     Indication: PROPHYLAXIS OF NAUSEA AND VOMITING
     Route: 048
     Dates: start: 20111209, end: 20111209
  3. EMEND [Suspect]
     Route: 048
     Dates: start: 20111210, end: 20111211

REACTIONS (1)
  - ATRIAL FIBRILLATION [None]
